FAERS Safety Report 18725628 (Version 2)
Quarter: 2021Q1

REPORT INFORMATION
  Report Type: Spontaneous
  Country: DE (occurrence: DE)
  Receive Date: 20210111
  Receipt Date: 20210121
  Transmission Date: 20210419
  Serious: Yes (Other)
  Sender: FDA-Public Use
  Company Number: DE-TAKEDA-2021TUS000683

PATIENT
  Age: 54 Year
  Sex: Male

DRUGS (1)
  1. INTUNIV [Suspect]
     Active Substance: GUANFACINE HYDROCHLORIDE
     Indication: ATTENTION DEFICIT HYPERACTIVITY DISORDER
     Dosage: 3 MILLIGRAM
     Route: 065

REACTIONS (4)
  - Blood glucose increased [Unknown]
  - Depression [Unknown]
  - Off label use [Unknown]
  - Suicidal ideation [Unknown]
